FAERS Safety Report 8928323 (Version 1)
Quarter: 2012Q4

REPORT INFORMATION
  Report Type: 
  Country: FR (occurrence: FR)
  Receive Date: 20121128
  Receipt Date: 20121128
  Transmission Date: 20130627
  Serious: Yes (Other)
  Sender: FDA-Public Use
  Company Number: PHHY2012FR107704

PATIENT
  Sex: Female

DRUGS (1)
  1. VALSARTAN [Suspect]

REACTIONS (2)
  - Oligohydramnios [Recovering/Resolving]
  - Maternal exposure during pregnancy [Unknown]
